FAERS Safety Report 4818606-4 (Version None)
Quarter: 2005Q4

REPORT INFORMATION
  Report Type: 
  Country: None (occurrence: None)
  Receive Date: 20051031
  Receipt Date: 20051024
  Transmission Date: 20060501
  Serious: Yes (Other)
  Sender: FDA-Public Use
  Company Number: 200513621GDS

PATIENT
  Age: 38 Year
  Sex: Female

DRUGS (4)
  1. CIPROFLOXACIN [Suspect]
     Indication: GASTROENTERITIS SALMONELLA
  2. IBUPROFEN [Concomitant]
  3. NAPROXEN [Concomitant]
  4. COTRIM [Concomitant]

REACTIONS (1)
  - MENINGITIS ASEPTIC [None]
